FAERS Safety Report 10179463 (Version 1)
Quarter: 2014Q2

REPORT INFORMATION
  Report Type: Spontaneous
  Country: US (occurrence: US)
  Receive Date: 20140519
  Receipt Date: 20140519
  Transmission Date: 20141212
  Serious: No
  Sender: FDA-Public Use
  Company Number: US-TEVA-481832USA

PATIENT
  Age: 45 Year
  Sex: Female
  Weight: 47.67 kg

DRUGS (2)
  1. PARAGARD 380A [Suspect]
     Indication: CONTRACEPTION
     Route: 015
     Dates: start: 201209, end: 20140502
  2. MICROGESTIN [Suspect]
     Indication: ORAL CONTRACEPTION
     Route: 048

REACTIONS (5)
  - Migraine [Not Recovered/Not Resolved]
  - Onychoclasis [Not Recovered/Not Resolved]
  - Dry skin [Not Recovered/Not Resolved]
  - Metrorrhagia [Not Recovered/Not Resolved]
  - Menorrhagia [Unknown]
